FAERS Safety Report 12501626 (Version 1)
Quarter: 2016Q2

REPORT INFORMATION
  Report Type: Report from Study
  Country: US (occurrence: US)
  Receive Date: 20160627
  Receipt Date: 20160627
  Transmission Date: 20160815
  Serious: Yes (Hospitalization, Other)
  Sender: FDA-Public Use
  Company Number: US-GILEAD-2016-0220714

PATIENT
  Age: 67 Year
  Sex: Male

DRUGS (2)
  1. AMBRISENTAN [Suspect]
     Active Substance: AMBRISENTAN
     Indication: PRODUCT USED FOR UNKNOWN INDICATION
     Dosage: 5 MG, UNK
     Route: 065
  2. PREDNISONE. [Suspect]
     Active Substance: PREDNISONE
     Indication: LUNG DISORDER
     Route: 065

REACTIONS (7)
  - Osteoporosis [Unknown]
  - Weight decreased [Unknown]
  - Lumbar vertebral fracture [Unknown]
  - Lung disorder [Unknown]
  - Spinal fracture [Unknown]
  - Myocardial infarction [Unknown]
  - Muscle atrophy [Unknown]
